FAERS Safety Report 18795208 (Version 1)
Quarter: 2021Q1

REPORT INFORMATION
  Report Type: Spontaneous
  Country: US (occurrence: US)
  Receive Date: 20210127
  Receipt Date: 20210127
  Transmission Date: 20210419
  Serious: No
  Sender: FDA-Public Use
  Company Number: US-TEVA-2021-US-1871626

PATIENT
  Sex: Male

DRUGS (1)
  1. METOPROLOL ACTAVIS [Suspect]
     Active Substance: METOPROLOL
     Indication: HEART RATE INCREASED
     Route: 065

REACTIONS (5)
  - Rash [Unknown]
  - Nausea [Unknown]
  - Dyspepsia [Unknown]
  - Drug ineffective [Unknown]
  - Rhinorrhoea [Unknown]
